FAERS Safety Report 7474771-4 (Version None)
Quarter: 2011Q1

REPORT INFORMATION
  Report Type: 
  Country: None (occurrence: None)
  Receive Date: 20110302
  Receipt Date: 20101221
  Transmission Date: 20110831
  Serious: Yes (Death)
  Sender: FDA-Public Use
  Company Number: 163-21880-10092485

PATIENT
  Age: 75 Year
  Sex: Female

DRUGS (1)
  1. REVLIMID [Suspect]
     Indication: MULTIPLE MYELOMA
     Dosage: 10 MG, DAILY FOR 14 DAYS AS DIRECTED, PO
     Route: 048
     Dates: start: 20091221, end: 20101103

REACTIONS (5)
  - TREATMENT FAILURE [None]
  - FATIGUE [None]
  - CONSTIPATION [None]
  - DIARRHOEA [None]
  - MULTIPLE MYELOMA [None]
